FAERS Safety Report 9776536 (Version 3)
Quarter: 2014Q2

REPORT INFORMATION
  Report Type: Report from Study
  Country: US (occurrence: US)
  Receive Date: 20131220
  Receipt Date: 20140416
  Transmission Date: 20141212
  Serious: Yes (Hospitalization)
  Sender: FDA-Public Use
  Company Number: US-PFIZER INC-2013359806

PATIENT
  Age: 73 Year
  Sex: Male
  Weight: 72.7 kg

DRUGS (18)
  1. PF-04136309 [Suspect]
     Indication: PANCREATIC CARCINOMA
     Dosage: 500 MG, 2X/DAY
     Route: 048
     Dates: start: 20130930, end: 20131122
  2. IRINOTECAN HYDROCHLORIDE [Concomitant]
     Indication: PANCREATIC CARCINOMA
     Dosage: 294 MG, Q 2WEEKS
     Route: 042
     Dates: start: 20130930, end: 20131111
  3. OXALIPLATIN [Concomitant]
     Indication: PANCREATIC CARCINOMA
     Dosage: 167 MG, Q2 WEEKS
     Route: 042
     Dates: start: 20130930, end: 20131111
  4. FLUOROURACIL [Concomitant]
     Indication: PANCREATIC CARCINOMA
     Dosage: 5-FU BOLUS: 627 MG, Q2 WEEKS
     Route: 040
     Dates: start: 20130930, end: 20131111
  5. FLUOROURACIL [Concomitant]
     Dosage: 5-FU CIVI: 4704 MG, Q2 WEEKS
     Route: 042
     Dates: start: 20130930, end: 20131111
  6. LEUCOVORIN [Concomitant]
     Indication: PANCREATIC CARCINOMA
     Dosage: 784 MG, Q2 WEEKS
     Route: 042
     Dates: start: 20130930, end: 20131111
  7. MARINOL [Concomitant]
  8. ALBUTEROL [Concomitant]
  9. ASPIRIN [Concomitant]
  10. ATORVASTATIN [Concomitant]
  11. CALCIUM [Concomitant]
  12. NITROSTAT [Concomitant]
  13. CLOPIDOGREL [Concomitant]
  14. ENOXAPARIN [Concomitant]
  15. HYDROCODONE W/ACETAMINOPHEN [Concomitant]
  16. LOSARTAN [Concomitant]
  17. SYMBICORT [Concomitant]
  18. TERAZOSIN [Concomitant]

REACTIONS (1)
  - Subdural haematoma [Unknown]
